FAERS Safety Report 6120284-1 (Version None)
Quarter: 2009Q1

REPORT INFORMATION
  Report Type: 
  Country: None (occurrence: None)
  Receive Date: 20090312
  Receipt Date: 20090225
  Transmission Date: 20090719
  Serious: Yes (Other)
  Sender: FDA-Public Use
  Company Number: 2009S1003248

PATIENT
  Age: 29 Year
  Sex: Female

DRUGS (3)
  1. LIDOCAINE [Suspect]
  2. FENTANYL-100 [Suspect]
  3. BUPIVACAINE [Suspect]

REACTIONS (2)
  - ERYTHEMA MULTIFORME [None]
  - MULTIPLE ALLERGIES [None]
